FAERS Safety Report 7300000-8 (Version None)
Quarter: 2011Q1

REPORT INFORMATION
  Report Type: 
  Country: None (occurrence: None)
  Receive Date: 20110217
  Receipt Date: 20110208
  Transmission Date: 20110831
  Serious: Yes (Other)
  Sender: FDA-Public Use
  Company Number: US-ASTRAZENECA-2011SE06999

PATIENT
  Age: 60 Year
  Sex: Male

DRUGS (2)
  1. ROSUVASTATIN [Suspect]
     Route: 048
  2. ROSUVASTATIN [Suspect]
     Route: 048

REACTIONS (1)
  - POLYNEUROPATHY [None]
